FAERS Safety Report 17784674 (Version 1)
Quarter: 2020Q2

REPORT INFORMATION
  Report Type: Spontaneous
  Country: CN (occurrence: CN)
  Receive Date: 20200514
  Receipt Date: 20200514
  Transmission Date: 20200714
  Serious: Yes (Other)
  Sender: FDA-Public Use
  Company Number: CN-PFIZER INC-2020190671

PATIENT
  Age: 52 Year
  Sex: Male
  Weight: 73.7 kg

DRUGS (6)
  1. TYGACIL [Suspect]
     Active Substance: TIGECYCLINE
     Indication: INFECTION
     Dosage: 100 MG
     Route: 041
     Dates: start: 20200330, end: 20200330
  2. TYGACIL [Suspect]
     Active Substance: TIGECYCLINE
     Dosage: 50.000 MG, 2X/DAY
     Route: 041
     Dates: start: 20200330, end: 20200401
  3. TYGACIL [Suspect]
     Active Substance: TIGECYCLINE
     Dosage: 100.000 MG, 2X/DAY
     Route: 041
     Dates: start: 20200402, end: 20200414
  4. SODIUM CHLORIDE. [Concomitant]
     Active Substance: SODIUM CHLORIDE
     Indication: VEHICLE SOLUTION USE
     Dosage: 100 ML
     Dates: start: 20200330, end: 20200330
  5. SODIUM CHLORIDE. [Concomitant]
     Active Substance: SODIUM CHLORIDE
     Dosage: 100 ML, 2X/DAY
     Route: 041
     Dates: start: 20200330, end: 20200401
  6. SODIUM CHLORIDE. [Concomitant]
     Active Substance: SODIUM CHLORIDE
     Dosage: 250.000 ML, 2X/DAY
     Route: 041
     Dates: start: 20200402, end: 20200414

REACTIONS (3)
  - Coagulopathy [Recovering/Resolving]
  - Blood fibrinogen decreased [Recovering/Resolving]
  - Off label use [Unknown]

NARRATIVE: CASE EVENT DATE: 20200402
